FAERS Safety Report 9742673 (Version 2)
Quarter: 2015Q3

REPORT INFORMATION
  Report Type: Spontaneous
  Country: US (occurrence: US)
  Receive Date: 20131210
  Receipt Date: 20150804
  Transmission Date: 20151125
  Serious: Yes (Hospitalization)
  Sender: FDA-Public Use
  Company Number: US-GILEAD-2009-0025314

PATIENT
  Age: 59 Year
  Sex: Male

DRUGS (15)
  1. ASPIRIN. [Concomitant]
     Active Substance: ASPIRIN
  2. RAMIPRIL. [Concomitant]
     Active Substance: RAMIPRIL
  3. PRANDIN [Concomitant]
     Active Substance: REPAGLINIDE
  4. PLAVIX [Concomitant]
     Active Substance: CLOPIDOGREL BISULFATE
  5. SPIRONOLACTONE. [Concomitant]
     Active Substance: SPIRONOLACTONE
  6. COREG [Concomitant]
     Active Substance: CARVEDILOL
  7. LIPITOR [Concomitant]
     Active Substance: ATORVASTATIN CALCIUM
  8. LETAIRIS [Suspect]
     Active Substance: AMBRISENTAN
     Indication: PULMONARY ARTERIAL HYPERTENSION
     Route: 048
  9. KLOR-CON [Concomitant]
     Active Substance: POTASSIUM CHLORIDE
  10. GLYSET [Concomitant]
     Active Substance: MIGLITOL
  11. ACTOS [Concomitant]
     Active Substance: PIOGLITAZONE HYDROCHLORIDE
  12. COLCHICINE. [Concomitant]
     Active Substance: COLCHICINE
  13. LASIX [Concomitant]
     Active Substance: FUROSEMIDE
  14. NIASPAN [Concomitant]
     Active Substance: NIACIN
  15. ALLOPURINOL. [Concomitant]
     Active Substance: ALLOPURINOL

REACTIONS (2)
  - Oedema [Unknown]
  - Dyspnoea [Unknown]
